FAERS Safety Report 14068655 (Version 4)
Quarter: 2018Q3

REPORT INFORMATION
  Report Type: Spontaneous
  Country: US (occurrence: US)
  Receive Date: 20171010
  Receipt Date: 20180919
  Transmission Date: 20181010
  Serious: No
  Sender: FDA-Public Use
  Company Number: US-PFIZER INC-2017434993

PATIENT
  Age: 67 Year
  Sex: Female
  Weight: 99 kg

DRUGS (2)
  1. IBRANCE [Suspect]
     Active Substance: PALBOCICLIB
     Indication: BREAST CANCER FEMALE
     Dosage: 125 MG, CYCLIC (D1?21 Q28 DAYS)
     Route: 048
     Dates: start: 20170918
  2. IBRANCE [Suspect]
     Active Substance: PALBOCICLIB
     Dosage: 125 MG, CYCLIC (DAY 1?21 Q 28 DAYS)
     Route: 048
     Dates: start: 20170919

REACTIONS (5)
  - Stomatitis [Unknown]
  - Diarrhoea [Unknown]
  - Glossodynia [Unknown]
  - Lymphoedema [Unknown]
  - Swelling [Unknown]

NARRATIVE: CASE EVENT DATE: 2017
